FAERS Safety Report 22223454 (Version 4)
Quarter: 2024Q1

REPORT INFORMATION
  Report Type: Spontaneous
  Country: CA (occurrence: CA)
  Receive Date: 20230418
  Receipt Date: 20240229
  Transmission Date: 20240409
  Serious: Yes (Other)
  Sender: FDA-Public Use
  Company Number: CA-PFIZER INC-202300049335

PATIENT
  Age: 25 Year
  Sex: Female
  Weight: 81.633 kg

DRUGS (4)
  1. ABRILADA [Suspect]
     Active Substance: ADALIMUMAB-AFZB
     Indication: Crohn^s disease
     Dosage: 160 MG [1 DF; 160 MG W0, 80 MG W2, THEN Q 2 WEEKS STARTING W4; PREFILLED PEN]
     Route: 058
     Dates: start: 20230224
  2. ABRILADA [Suspect]
     Active Substance: ADALIMUMAB-AFZB
     Dosage: 160 MG [1 DF; 160 MG W0, 80 MG W2, THEN Q 2 WEEKS STARTING W4; PREFILLED PEN]
     Route: 058
     Dates: start: 20230310
  3. ABRILADA [Suspect]
     Active Substance: ADALIMUMAB-AFZB
     Dosage: 40 MG, EVERY 2 WEEKS
     Route: 058
  4. INFLECTRA [Concomitant]
     Active Substance: INFLIXIMAB-DYYB
     Indication: Crohn^s disease
     Dosage: 400 MG
     Route: 042
     Dates: start: 20220205

REACTIONS (9)
  - Fistula [Not Recovered/Not Resolved]
  - Device leakage [Unknown]
  - Device use error [Unknown]
  - Incorrect dose administered by device [Unknown]
  - Impaired quality of life [Unknown]
  - Anal fissure [Recovered/Resolved]
  - Abscess [Not Recovered/Not Resolved]
  - Impaired healing [Unknown]
  - Condition aggravated [Recovering/Resolving]

NARRATIVE: CASE EVENT DATE: 20230101
